FAERS Safety Report 18869500 (Version 2)
Quarter: 2022Q3

REPORT INFORMATION
  Report Type: Report from Study
  Country: US (occurrence: None)
  Receive Date: 20210210
  Receipt Date: 20220901
  Transmission Date: 20221027
  Serious: Yes (Life-Threatening)
  Sender: FDA-Public Use
  Company Number: US-ROCHE-2631361

PATIENT
  Age: 6 Year
  Sex: Male
  Weight: 26.7 kg

DRUGS (37)
  1. OMALIZUMAB [Suspect]
     Active Substance: OMALIZUMAB
     Indication: Asthma
     Dosage: ON 09/MAR/2021, HE RECEIVED MOST RECENT DOSE.
     Route: 058
     Dates: start: 20190530
  2. FLUTICASONE [Concomitant]
     Active Substance: FLUTICASONE
     Dosage: 44 MCG
     Dates: start: 20190927, end: 20200609
  3. FLUTICASONE [Concomitant]
     Active Substance: FLUTICASONE
     Dosage: 44 MCG
     Dates: start: 20190927, end: 20200611
  4. VENTOLIN [Concomitant]
     Active Substance: ALBUTEROL SULFATE
     Dates: start: 20190509
  5. CETIRIZINE [Concomitant]
     Active Substance: CETIRIZINE HYDROCHLORIDE
     Dates: start: 20200614, end: 20200614
  6. CETIRIZINE [Concomitant]
     Active Substance: CETIRIZINE HYDROCHLORIDE
     Dates: start: 20200302
  7. HYDROCORTISONE [Concomitant]
     Active Substance: HYDROCORTISONE
     Dates: start: 20200330
  8. HYDROCORTISONE [Concomitant]
     Active Substance: HYDROCORTISONE
     Dates: start: 20220726, end: 20220730
  9. HYDROCORTISONE [Concomitant]
     Active Substance: HYDROCORTISONE
     Dates: start: 20191210, end: 20191210
  10. HYDROCORTISONE [Concomitant]
     Active Substance: HYDROCORTISONE
     Dates: start: 20190509, end: 20191001
  11. AUVI-Q [Concomitant]
     Active Substance: EPINEPHRINE
     Dates: start: 20200609
  12. MOMETASONE [Concomitant]
     Active Substance: MOMETASONE
     Dosage: 100 MCG
     Dates: start: 20220606
  13. AMOXICILLIN [Concomitant]
     Active Substance: AMOXICILLIN
     Dates: start: 20220310, end: 20220310
  14. AMOXICILLIN [Concomitant]
     Active Substance: AMOXICILLIN
     Dates: start: 20200810, end: 20200819
  15. PFIZER-BIONTECH COVID-19 VACCINE [Concomitant]
     Active Substance: TOZINAMERAN
     Dates: start: 20211129
  16. PFIZER-BIONTECH COVID-19 VACCINE [Concomitant]
     Active Substance: TOZINAMERAN
     Dates: start: 20211108
  17. CLOTRIMAZOLE [Concomitant]
     Active Substance: CLOTRIMAZOLE
     Dates: start: 20210804, end: 20211025
  18. OMEPRAZOLE [Concomitant]
     Active Substance: OMEPRAZOLE
     Dates: start: 20210216, end: 20210329
  19. OMEPRAZOLE [Concomitant]
     Active Substance: OMEPRAZOLE
     Dates: start: 20200923, end: 20201211
  20. DIPHENHYDRAMINE [Concomitant]
     Active Substance: DIPHENHYDRAMINE
     Dates: start: 20210224, end: 20210224
  21. DIPHENHYDRAMINE [Concomitant]
     Active Substance: DIPHENHYDRAMINE
     Dates: start: 20191216, end: 20191224
  22. DIPHENHYDRAMINE [Concomitant]
     Active Substance: DIPHENHYDRAMINE
     Dates: start: 20191106, end: 20191109
  23. DIPHENHYDRAMINE [Concomitant]
     Active Substance: DIPHENHYDRAMINE
     Dates: start: 20191026, end: 20191026
  24. DIPHENHYDRAMINE [Concomitant]
     Active Substance: DIPHENHYDRAMINE
     Dates: start: 20190918, end: 20191119
  25. DIPHENHYDRAMINE [Concomitant]
     Active Substance: DIPHENHYDRAMINE
     Dates: start: 20190818, end: 20190820
  26. DIPHENHYDRAMINE [Concomitant]
     Active Substance: DIPHENHYDRAMINE
     Dates: start: 20190629, end: 20190703
  27. DIPHENHYDRAMINE [Concomitant]
     Active Substance: DIPHENHYDRAMINE
     Dates: start: 20190629, end: 20190711
  28. DIPHENHYDRAMINE [Concomitant]
     Active Substance: DIPHENHYDRAMINE
     Dates: end: 20190614
  29. EPINEPHRINE [Concomitant]
     Active Substance: EPINEPHRINE
     Dates: start: 20210224, end: 20210224
  30. EPINEPHRINE [Concomitant]
     Active Substance: EPINEPHRINE
     Dates: start: 20200614, end: 20200614
  31. OSELTAMIVIR [Concomitant]
     Active Substance: OSELTAMIVIR
     Dates: start: 20200201, end: 20200212
  32. IBUPROFEN [Concomitant]
     Active Substance: IBUPROFEN
     Dates: start: 20200131, end: 20200201
  33. IBUPROFEN [Concomitant]
     Active Substance: IBUPROFEN
     Dates: start: 20190629, end: 20190703
  34. IBUPROFEN [Concomitant]
     Active Substance: IBUPROFEN
     Dates: start: 20190611, end: 20190614
  35. DEXAMETHASONE [Concomitant]
     Active Substance: DEXAMETHASONE
     Dates: start: 20190926, end: 20190926
  36. PREDNISOLONE [Concomitant]
     Active Substance: PREDNISOLONE
     Dates: start: 20190821, end: 20190824
  37. FEXOFENADINE [Concomitant]
     Active Substance: FEXOFENADINE HYDROCHLORIDE
     Dates: start: 20190802, end: 20190803

REACTIONS (1)
  - Anaphylactic reaction [Recovered/Resolved]

NARRATIVE: CASE EVENT DATE: 20200614
